FAERS Safety Report 18053914 (Version 2)
Quarter: 2020Q3

REPORT INFORMATION
  Report Type: Spontaneous
  Country: CN (occurrence: CN)
  Receive Date: 20200722
  Receipt Date: 20200728
  Transmission Date: 20201103
  Serious: Yes (Other)
  Sender: FDA-Public Use
  Company Number: CN-ROCHE-2645066

PATIENT
  Age: 62 Year
  Sex: Male

DRUGS (10)
  1. OXALIPLATIN. [Concomitant]
     Active Substance: OXALIPLATIN
     Dosage: DAY1
  2. PACLITAXEL LIPOSOME [Concomitant]
     Active Substance: PACLITAXEL
     Dosage: DAY1, 1CYCLE
     Route: 041
     Dates: start: 20190927
  3. HERCEPTIN [Suspect]
     Active Substance: TRASTUZUMAB
     Dosage: 10 CYCLES
     Route: 041
     Dates: start: 20191114, end: 20200703
  4. OXALIPLATIN. [Concomitant]
     Active Substance: OXALIPLATIN
     Dosage: DAY1, 2CYCLES
  5. TEGAFUR [Concomitant]
     Active Substance: TEGAFUR
     Dosage: 1.0, DAY1?DAY4
  6. CAPECITABINE. [Concomitant]
     Active Substance: CAPECITABINE
     Dosage: DAY1?DAY14, EVERY THREE WEEKS AS A CYCLE, 1CYCLE
     Route: 048
     Dates: start: 20191021
  7. HERCEPTIN [Suspect]
     Active Substance: TRASTUZUMAB
     Indication: METASTATIC GASTRIC CANCER
     Route: 041
     Dates: start: 20191021
  8. CAPECITABINE. [Concomitant]
     Active Substance: CAPECITABINE
     Dosage: DAY1?DAY14, EVERY THREE WEEKS AS A CYCLE, 1CYCLE
     Route: 048
     Dates: start: 20190927
  9. TEGAFUR GIMERACIL AND OTERACIL POTASSIUM [Concomitant]
     Active Substance: GIMERACIL\OTERACIL\TEGAFUR
     Dosage: DAY1?DAY14, 2CYCLES
  10. CAPECITABINE. [Concomitant]
     Active Substance: CAPECITABINE
     Dosage: DAY1?DAY14, EVERY THREE WEEKS AS A CYCLE, 10CYCLES
     Route: 048
     Dates: start: 20191114, end: 20200703

REACTIONS (1)
  - Myelosuppression [Recovering/Resolving]
